FAERS Safety Report 19451619 (Version 1)
Quarter: 2021Q2

REPORT INFORMATION
  Report Type: Spontaneous
  Country: US (occurrence: US)
  Receive Date: 20210623
  Receipt Date: 20210623
  Transmission Date: 20210717
  Serious: Yes (Hospitalization)
  Sender: FDA-Public Use
  Company Number: None

PATIENT
  Age: 57 Year
  Sex: Female

DRUGS (1)
  1. SOFOSB/VELPAT TAB 400?100 MG [Suspect]
     Active Substance: SOFOSBUVIR\VELPATASVIR
     Indication: HEPATITIS C
     Dosage: ?          OTHER DOSE:400?100MG;?
     Route: 048
     Dates: start: 202104

REACTIONS (4)
  - Intentional dose omission [None]
  - Blood potassium decreased [None]
  - Angina pectoris [None]
  - Hypertension [None]

NARRATIVE: CASE EVENT DATE: 20210619
